FAERS Safety Report 8087072-0 (Version None)
Quarter: 2012Q1

REPORT INFORMATION
  Report Type: 
  Country: None (occurrence: None)
  Receive Date: 20120128
  Receipt Date: 20110611
  Transmission Date: 20120608
  Serious: No
  Sender: FDA-Public Use
  Company Number: US-ABBOTT-11P-163-0731793-00

PATIENT
  Age: 22 Year
  Sex: Female

DRUGS (2)
  1. ORTHOTRICYCLINE CONTRACEPTIVE [Concomitant]
     Indication: PRODUCT USED FOR UNKNOWN INDICATION
  2. HUMIRA [Suspect]
     Indication: CROHN'S DISEASE
     Dates: start: 20110401

REACTIONS (2)
  - DRUG INEFFECTIVE [None]
  - DIARRHOEA [None]
